FAERS Safety Report 6780072-X (Version None)
Quarter: 2010Q2

REPORT INFORMATION
  Report Type: 
  Country: None (occurrence: None)
  Receive Date: 20100618
  Receipt Date: 20100610
  Transmission Date: 20101027
  Serious: Yes (Other)
  Sender: FDA-Public Use
  Company Number: US-PFIZER INC-2010073558

PATIENT
  Sex: Female

DRUGS (2)
  1. LIPITOR [Suspect]
     Dosage: UNK
     Dates: start: 20030101
  2. FOLIC ACID [Concomitant]

REACTIONS (8)
  - ABDOMINAL PAIN UPPER [None]
  - CEREBROVASCULAR ACCIDENT [None]
  - FATIGUE [None]
  - IRRITABLE BOWEL SYNDROME [None]
  - MYALGIA [None]
  - NAUSEA [None]
  - OSTEOPOROSIS [None]
  - SURGERY [None]
